FAERS Safety Report 6494378-5 (Version None)
Quarter: 2009Q4

REPORT INFORMATION
  Report Type: 
  Country: None (occurrence: None)
  Receive Date: 20091214
  Receipt Date: 20090211
  Transmission Date: 20100525
  Serious: No
  Sender: FDA-Public Use
  Company Number: US-BRISTOL-MYERS SQUIBB COMPANY-14504187

PATIENT
  Sex: Male

DRUGS (2)
  1. ABILIFY [Suspect]
     Indication: MAJOR DEPRESSION
     Dosage: INITIALLY 5MG;THEN INCREASED TO 15MG;REDUCED TO 5MG
  2. ANTIDEPRESSANT [Concomitant]

REACTIONS (1)
  - RESTLESSNESS [None]
